FAERS Safety Report 6274230-0 (Version None)
Quarter: 2009Q3

REPORT INFORMATION
  Report Type: 
  Country: None (occurrence: None)
  Receive Date: 20090720
  Receipt Date: 20090708
  Transmission Date: 20100115
  Serious: Yes (Other)
  Sender: FDA-Public Use
  Company Number: ES-PFIZER INC-2009237337

PATIENT
  Age: 82 Year

DRUGS (9)
  1. FESOTERODINE [Suspect]
     Indication: HYPERTONIC BLADDER
     Dosage: 8 MG, 1X/DAY
     Route: 048
     Dates: start: 20090205, end: 20090101
  2. CIDINE [Concomitant]
  3. OMEPRAZOLE [Concomitant]
  4. DUPHALAC [Concomitant]
  5. TROMALYT [Concomitant]
  6. ACOVIL [Concomitant]
  7. ASTUDAL [Concomitant]
  8. TEPAZEPAN [Concomitant]
  9. HYDREA [Concomitant]

REACTIONS (5)
  - AGGRESSION [None]
  - DECREASED APPETITE [None]
  - DEMENTIA [None]
  - RASH [None]
  - URINARY RETENTION [None]
